FAERS Safety Report 6122108-5 (Version None)
Quarter: 2009Q1

REPORT INFORMATION
  Report Type: 
  Country: None (occurrence: None)
  Receive Date: 20090316
  Receipt Date: 20090316
  Transmission Date: 20090719
  Serious: Yes (Other)
  Sender: FDA-Public Use
  Company Number: None

PATIENT
  Age: 2 Month
  Sex: Male
  Weight: 4.9896 kg

DRUGS (2)
  1. ZANTAC [Suspect]
     Indication: GASTROOESOPHAGEAL REFLUX DISEASE
     Dosage: 1.5 ML 2X DAY PO
     Route: 048
     Dates: start: 20090302, end: 20090304
  2. ZANTAC [Suspect]
     Indication: GASTROOESOPHAGEAL REFLUX DISEASE
     Dosage: 1.5 ML 2X DAY PO
     Route: 048
     Dates: start: 20090315, end: 20090316

REACTIONS (16)
  - ANOREXIA [None]
  - CRYING [None]
  - FATIGUE [None]
  - FEEDING DISORDER [None]
  - GASTRIC DISORDER [None]
  - HUNGER [None]
  - INSOMNIA [None]
  - IRRITABILITY [None]
  - MALAISE [None]
  - MIDDLE INSOMNIA [None]
  - MOOD ALTERED [None]
  - OROPHARYNGEAL PAIN [None]
  - PYREXIA [None]
  - SCREAMING [None]
  - SLEEP DISORDER [None]
  - SWELLING FACE [None]
